FAERS Safety Report 5356479-4 (Version None)
Quarter: 2007Q2

REPORT INFORMATION
  Report Type: 
  Country: None (occurrence: None)
  Receive Date: 20070530
  Receipt Date: 20070111
  Transmission Date: 20071010
  Serious: Yes (Hospitalization)
  Sender: FDA-Public Use
  Company Number: US200609003715

PATIENT
  Age: 51 Year
  Sex: Female
  Weight: 102 kg

DRUGS (1)
  1. ZYPREXA [Suspect]
     Dosage: 10 MG
     Dates: start: 19990101, end: 20000101

REACTIONS (1)
  - PANCREATITIS [None]
